FAERS Safety Report 16797143 (Version 1)
Quarter: 2019Q3

REPORT INFORMATION
  Report Type: Spontaneous
  Country: US (occurrence: US)
  Receive Date: 20190911
  Receipt Date: 20190911
  Transmission Date: 20191005
  Serious: No
  Sender: FDA-Public Use
  Company Number: US-JNJFOC-20190912013

PATIENT

DRUGS (1)
  1. TYLENOL [Suspect]
     Active Substance: ACETAMINOPHEN
     Indication: BACK PAIN
     Dosage: TAKE IT AT 7AM, 1 IN THE AFTERNOON AND AGAIN AT 7PM
     Route: 048

REACTIONS (1)
  - Incorrect dose administered [Unknown]
